FAERS Safety Report 9252889 (Version 1)
Quarter: 2013Q1

REPORT INFORMATION
  Report Type: Spontaneous
  Country: US (occurrence: None)
  Receive Date: 20130305
  Receipt Date: 20130305
  Transmission Date: 20140127
  Serious: Yes (Other)
  Sender: FDA-Public Use
  Company Number: 163-201880-12091441

PATIENT
  Age: 53 Year
  Sex: Female

DRUGS (20)
  1. REVLIMID [Suspect]
     Indication: PLASMA CELL MYELOMA
     Route: 048
     Dates: start: 201005, end: 2011
  2. DEXAMETHASONE (DEXAMETHASONE) [Concomitant]
  3. ZOMETA (ZOLEDRONIC ACID) [Concomitant]
  4. AMOXICILLIN (AMOXICILLIN) [Concomitant]
  5. LORAZEPAM (LORAZEPAM) [Concomitant]
  6. AZITHROMYCIN (AZITHROMYCIN) [Concomitant]
  7. ONDANSETRON (ONDANSETRON) [Concomitant]
  8. ACYCLOVIR (ACICLOVIR) [Concomitant]
  9. ASPIRIN (ACETYLSALICYLIC ACID) [Concomitant]
  10. DOXYCYCLINE (DOXYCYCLINE) [Concomitant]
  11. BACTRIM DS (BACTRIM) [Concomitant]
  12. OMEPRAZOLE (OMEPRAZOLE) [Concomitant]
  13. MAGNESIUM OXIDE (MAGNESIUM OXIDE) [Concomitant]
  14. MULTIVITAMIN (MULTIVITAMINS) [Concomitant]
  15. CEFPODOXIME (CEFPODOXIME) [Concomitant]
  16. VITAMIN C [Concomitant]
  17. LEVAQUIN (LEVOFLOXACIN) [Concomitant]
  18. VITAMIN D (ERGOCALCIFEROL) [Concomitant]
  19. HYDROCORTISONE-PRAMOXINE (HYDROCORTISONE W/PRAMOXINE) [Concomitant]
  20. NEUPOGEN (FILGRASTIM) [Concomitant]

REACTIONS (1)
  - Pruritus [None]
